FAERS Safety Report 5107930-6 (Version None)
Quarter: 2006Q3

REPORT INFORMATION
  Report Type: 
  Country: None (occurrence: None)
  Receive Date: 20060907
  Receipt Date: 20060817
  Transmission Date: 20061208
  Serious: Yes (Other)
  Sender: FDA-Public Use
  Company Number: 2005BH003585

PATIENT
  Sex: Female

DRUGS (16)
  1. GAMMAGARD S/D [Suspect]
     Indication: DRUG USE FOR UNKNOWN INDICATION
  2. INJECTABLE GLOBULIN (BAYER) [Suspect]
     Indication: DRUG USE FOR UNKNOWN INDICATION
  3. INJECTABLE GLOBULIN (JOHNSON + JOHNSON CONSUMER COMPANIES) [Suspect]
     Indication: DRUG USE FOR UNKNOWN INDICATION
  4. INJECTABLE GLOBULIN (ORTHO-CLINICAL DIAGNOSTIC, INC) [Suspect]
     Indication: DRUG USE FOR UNKNOWN INDICATION
  5. INJECTABLE GLOBULIN (ABBOTT LABORATORIES, INC.) [Suspect]
     Indication: DRUG USE FOR UNKNOWN INDICATION
  6. INJECTABLE GLOBULIN (AVENTIS PASTEUR, INC.) [Suspect]
     Indication: DRUG USE FOR UNKNOWN INDICATION
  7. INJECTABLE GLOBULIN (BIOPORT CORPORATION) [Suspect]
     Indication: DRUG USE FOR UNKNOWN INDICATION
  8. INJECTABLE GLOBULIN (ELI LILLY AND COMPANY) [Suspect]
     Indication: DRUG USE FOR UNKNOWN INDICATION
  9. INJECTABLE GLOBULIN (G.D.L. INTERNATIONAL, INC.) [Suspect]
     Indication: DRUG USE FOR UNKNOWN INDICATION
  10. INJECTABLE GLOBULIN (GLAXOSMITHKLINE) [Suspect]
     Indication: DRUG USE FOR UNKNOWN INDICATION
  11. INJECTABLE GLOBULIN (KING PHARMACEUTICALS, INC.) [Suspect]
     Indication: DRUG USE FOR UNKNOWN INDICATION
  12. INJECTABLE GLOBULIN (MEDEVA PHARMACEUTICALS, INC.) [Suspect]
     Indication: DRUG USE FOR UNKNOWN INDICATION
  13. INJECTABLE GLOBULIN (MERCK + COMPANY, INC.) [Suspect]
     Indication: DRUG USE FOR UNKNOWN INDICATION
  14. INJECTABLE GLOBULIN (SIGMA-ALDRICH COMPANY) [Suspect]
     Indication: DRUG USE FOR UNKNOWN INDICATION
  15. INJECTABLE GLOBULIN (SPECTRUM CHEMICAL MANUFACTURING CORP.) [Suspect]
     Indication: DRUG USE FOR UNKNOWN INDICATION
  16. INJECTABLE GLOBULIN (AMERICAN HOME PRODUCTS CORPORATION) [Suspect]
     Indication: DRUG USE FOR UNKNOWN INDICATION

REACTIONS (2)
  - IATROGENIC INJURY [None]
  - METAL POISONING [None]
